FAERS Safety Report 12737906 (Version 1)
Quarter: 2016Q3

REPORT INFORMATION
  Report Type: Spontaneous
  Country: CH (occurrence: CH)
  Receive Date: 20160913
  Receipt Date: 20160913
  Transmission Date: 20161109
  Serious: Yes (Life-Threatening, Hospitalization, Other)
  Sender: FDA-Public Use
  Company Number: CH-ELI_LILLY_AND_COMPANY-CH201609003048

PATIENT
  Age: 40 Year
  Sex: Male
  Weight: 100 kg

DRUGS (9)
  1. SOLIAN [Suspect]
     Active Substance: AMISULPRIDE
     Indication: SCHIZOAFFECTIVE DISORDER
     Dosage: 100 MG, QD
     Route: 048
     Dates: end: 20160509
  2. VALPROAT [Suspect]
     Active Substance: VALPROATE SODIUM
     Dosage: 1000MG-0-1500MG
     Route: 065
     Dates: start: 20160422, end: 20160427
  3. TRANXILIUM [Suspect]
     Active Substance: CLORAZEPATE DIPOTASSIUM
     Indication: PRODUCT USED FOR UNKNOWN INDICATION
     Dosage: 10 MG, TID
     Route: 048
  4. QUILONORM                          /00033703/ [Suspect]
     Active Substance: LITHIUM ACETATE
     Indication: SCHIZOAFFECTIVE DISORDER
     Dosage: 8.1 MMOL, TID
     Route: 048
     Dates: end: 20160420
  5. OLANZAPINE. [Suspect]
     Active Substance: OLANZAPINE
     Indication: SCHIZOAFFECTIVE DISORDER
     Dosage: 10 MG, BID
     Route: 048
     Dates: end: 20160419
  6. PRIADEL                            /00033702/ [Concomitant]
     Active Substance: LITHIUM CARBONATE
     Indication: SCHIZOAFFECTIVE DISORDER
     Dosage: UNK
  7. ABILIFY [Suspect]
     Active Substance: ARIPIPRAZOLE
     Indication: SCHIZOAFFECTIVE DISORDER
     Dosage: 5 MG, QD
     Route: 048
  8. VALPROAT [Suspect]
     Active Substance: VALPROATE SODIUM
     Indication: SCHIZOAFFECTIVE DISORDER
     Dosage: 1000MG-0-1500MG
     Route: 048
     Dates: end: 20160419
  9. ABILIFY [Suspect]
     Active Substance: ARIPIPRAZOLE
     Dosage: 10 MG, QD
     Route: 048
     Dates: start: 20160427, end: 20160430

REACTIONS (8)
  - Pancreatitis [Recovered/Resolved]
  - Lipase increased [Recovered/Resolved]
  - Encephalopathy [Unknown]
  - Acute respiratory distress syndrome [Recovered/Resolved]
  - Neuroleptic malignant syndrome [Recovered/Resolved]
  - Pneumonia [Recovered/Resolved]
  - Neuromyopathy [Unknown]
  - Amylase increased [Recovered/Resolved]

NARRATIVE: CASE EVENT DATE: 20160409
